FAERS Safety Report 8819897 (Version 1)
Quarter: 2012Q4

REPORT INFORMATION
  Report Type: 
  Country: US (occurrence: US)
  Receive Date: 20121002
  Receipt Date: 20121002
  Transmission Date: 20130627
  Serious: No
  Sender: FDA-Public Use
  Company Number: US-TEVA-357457USA

PATIENT
  Sex: Male
  Weight: 92.62 kg

DRUGS (13)
  1. QNASL [Suspect]
     Indication: POLYP
     Dosage: 640 mcg
     Route: 045
     Dates: start: 201208
  2. AVALIDE [Concomitant]
     Dosage: 300-25 mg
     Route: 048
  3. FLOMAX [Concomitant]
     Dosage: 4 Milligram Daily;
     Route: 048
  4. FINASTERIDE [Concomitant]
     Dosage: 5 Milligram Daily;
     Route: 048
  5. METFORMIN ER [Concomitant]
     Dosage: 500 Milligram Daily;
     Route: 048
  6. OMEPRAZOLE [Concomitant]
     Dosage: 20 Milligram Daily;
     Route: 048
  7. MULTIVITAMIN [Concomitant]
     Indication: ROUTINE HEALTH MAINTENANCE
     Dosage: 1 tab
     Route: 048
  8. COREG [Concomitant]
     Dosage: 25 Milligram Daily; 25 mg
     Route: 048
  9. FERROUS SULFATE [Concomitant]
     Dosage: 325 Milligram Daily;
     Route: 048
  10. GABAPENTIN [Concomitant]
     Dosage: 300 Milligram Daily;
     Route: 048
  11. LOVASTATIN [Concomitant]
     Indication: HYPERCHOLESTEROLAEMIA
     Dosage: 20 Milligram Daily;
     Route: 048
  12. ZANTAC [Concomitant]
     Dosage: 300 Milligram Daily;
     Route: 048
  13. LATANOPROST EYE DROP [Concomitant]
     Dosage: 2 drops
     Route: 047

REACTIONS (1)
  - Dizziness [Not Recovered/Not Resolved]
